FAERS Safety Report 9549764 (Version 2)
Quarter: 2013Q3

REPORT INFORMATION
  Report Type: Spontaneous
  Country: US (occurrence: US)
  Receive Date: 20130924
  Receipt Date: 20130924
  Transmission Date: 20140515
  Serious: No
  Sender: FDA-Public Use
  Company Number: US-ALLERGAN-1309708US

PATIENT
  Age: 82 Year
  Sex: Female

DRUGS (4)
  1. LUMIGAN 0.01% [Suspect]
     Indication: RETINAL VEIN OCCLUSION
     Dosage: 2 GTT, QHS
     Route: 047
  2. NORVASC [Concomitant]
     Indication: HYPERTENSION
     Dosage: 5 MG, QD
     Route: 048
  3. TIMOLOL MALEATE [Concomitant]
     Indication: OCULAR HYPERTENSION
     Dosage: 1 GTT, QAM
     Route: 047
  4. CALCIUM CHANNEL BLOCKERS [Concomitant]
     Indication: HYPOTENSION
     Dosage: 5 MG, QAM

REACTIONS (6)
  - Blood pressure decreased [Recovering/Resolving]
  - Sluggishness [Unknown]
  - Fatigue [Unknown]
  - Constipation [Unknown]
  - Proctalgia [Unknown]
  - Faeces hard [Unknown]
